FAERS Safety Report 24575206 (Version 1)
Quarter: 2024Q4

REPORT INFORMATION
  Report Type: Spontaneous
  Country: US (occurrence: None)
  Receive Date: 20241101
  Receipt Date: 20241101
  Transmission Date: 20250115
  Serious: Yes (Death)
  Sender: Public
  Company Number: None

PATIENT
  Age: 75 Year
  Sex: Female

DRUGS (1)
  1. CAPECITABINE [Suspect]
     Active Substance: CAPECITABINE
     Indication: Colon cancer
     Dosage: 1000 MG BID ORAL  7 DAYS ON, 7 DAYS OFF
     Route: 048
     Dates: start: 20240822

REACTIONS (1)
  - Death [None]

NARRATIVE: CASE EVENT DATE: 20241019
